FAERS Safety Report 6659697-8 (Version None)
Quarter: 2010Q1

REPORT INFORMATION
  Report Type: 
  Country: None (occurrence: None)
  Receive Date: 20100324
  Receipt Date: 20100315
  Transmission Date: 20100710
  Serious: Yes (Death)
  Sender: FDA-Public Use
  Company Number: WAES 1003USA03499

PATIENT

DRUGS (3)
  1. DECADRON [Suspect]
     Indication: MULTIPLE MYELOMA
     Dosage: 20 MG/4XWK, 20 MG/WKY
     Route: 048
  2. THALIDOMIDE [Suspect]
     Indication: MULTIPLE MYELOMA
     Dosage: 100 MG/PM 50 MG/WKY
  3. ZOLEDRONIC ACID [Suspect]
     Indication: MULTIPLE MYELOMA
     Dosage: 4 MG/3XW

REACTIONS (5)
  - BRONCHOPNEUMONIA [None]
  - GASTROINTESTINAL INFECTION [None]
  - PULMONARY EMBOLISM [None]
  - SEPSIS [None]
  - URINARY TRACT INFECTION [None]
